FAERS Safety Report 13601138 (Version 1)
Quarter: 2017Q2

REPORT INFORMATION
  Report Type: Spontaneous
  Country: US (occurrence: US)
  Receive Date: 20170601
  Receipt Date: 20170601
  Transmission Date: 20170830
  Serious: Yes (Hospitalization, Other)
  Sender: FDA-Public Use
  Company Number: US-BAYER-2017-101056

PATIENT
  Age: 79 Year
  Sex: Male

DRUGS (5)
  1. ACETYLSALICYLIC ACID({=100 MG) [Suspect]
     Active Substance: ASPIRIN
  2. LEVODOPA [Concomitant]
     Active Substance: LEVODOPA
  3. DIPYRIDAMOLE. [Concomitant]
     Active Substance: DIPYRIDAMOLE
  4. CEFTRIAXONE. [Concomitant]
     Active Substance: CEFTRIAXONE
  5. CARBIDOPA. [Concomitant]
     Active Substance: CARBIDOPA

REACTIONS (8)
  - Lyme disease [None]
  - Meningitis [None]
  - Off label use [None]
  - Asthenia [None]
  - Dizziness [None]
  - Bandaemia [None]
  - Pyrexia [None]
  - Drug ineffective for unapproved indication [None]
